FAERS Safety Report 8346099-1 (Version None)
Quarter: 2012Q2

REPORT INFORMATION
  Report Type: 
  Country: None (occurrence: None)
  Receive Date: 20120504
  Receipt Date: 20120420
  Transmission Date: 20120825
  Serious: Yes (Death, Other)
  Sender: FDA-Public Use
  Company Number: ENTC2011-0554

PATIENT
  Age: 93 Year
  Sex: Female

DRUGS (4)
  1. NEURONTIN [Concomitant]
  2. ANTIPLATELETS [Concomitant]
  3. STALEVO 100 [Suspect]
     Indication: PARKINSON'S DISEASE
     Dosage: 50/12.5/200 MG, THREE TIMES DAILY
     Dates: start: 20110530, end: 20111201
  4. VITAMIN B COMPLEX CAP [Concomitant]

REACTIONS (3)
  - LUNG NEOPLASM MALIGNANT [None]
  - NAUSEA [None]
  - DIZZINESS [None]
